FAERS Safety Report 6217231-0 (Version None)
Quarter: 2009Q2

REPORT INFORMATION
  Report Type: 
  Country: None (occurrence: None)
  Receive Date: 20090608
  Receipt Date: 20090526
  Transmission Date: 20091009
  Serious: Yes (Hospitalization)
  Sender: FDA-Public Use
  Company Number: JP-PFIZER INC-2009200211

PATIENT
  Age: 62 Year

DRUGS (13)
  1. VFEND [Suspect]
     Indication: PNEUMONIA FUNGAL
     Dosage: UNK
     Route: 048
     Dates: start: 20090402, end: 20090414
  2. PREDONINE [Concomitant]
     Route: 048
  3. PREDNISOLONE [Concomitant]
     Route: 048
  4. PROGRAF [Concomitant]
     Route: 048
  5. GARENOXACIN MESILATE [Concomitant]
     Route: 048
  6. ZOVIRAX [Concomitant]
  7. URSO 250 [Concomitant]
     Route: 048
  8. BLOPRESS [Concomitant]
     Route: 048
  9. LANSOPRAZOLE [Concomitant]
     Route: 048
  10. MEVALOTIN [Concomitant]
     Route: 048
  11. POTASSIUM CHLORIDE [Concomitant]
     Route: 048
  12. TORASEMIDE [Concomitant]
     Route: 048
  13. ACTONEL [Concomitant]
     Route: 048

REACTIONS (6)
  - DECREASED APPETITE [None]
  - DRUG DISPENSING ERROR [None]
  - DYSGEUSIA [None]
  - HYPONATRAEMIA [None]
  - MALAISE [None]
  - OVERDOSE [None]
